FAERS Safety Report 8829797 (Version 1)
Quarter: 2012Q4

REPORT INFORMATION
  Report Type: 
  Country: US (occurrence: US)
  Receive Date: 20121008
  Receipt Date: 20121008
  Transmission Date: 20130627
  Serious: Yes (Hospitalization, Other)
  Sender: FDA-Public Use
  Company Number: US-ROCHE-1134112

PATIENT
  Sex: Male

DRUGS (3)
  1. RITUXAN [Suspect]
     Indication: CHRONIC LYMPHOCYTIC LEUKAEMIA
     Route: 065
     Dates: start: 19980602
  2. FOLIC ACID [Concomitant]
  3. PEPCID [Concomitant]

REACTIONS (5)
  - Anaemia haemolytic autoimmune [Recovering/Resolving]
  - Jaundice [Unknown]
  - Malaise [Unknown]
  - Fatigue [Unknown]
  - Dyspnoea exertional [Unknown]
